FAERS Safety Report 7438571-3 (Version None)
Quarter: 2011Q2

REPORT INFORMATION
  Report Type: 
  Country: None (occurrence: None)
  Receive Date: 20110426
  Receipt Date: 20110418
  Transmission Date: 20111010
  Serious: Yes (Death, Hospitalization)
  Sender: FDA-Public Use
  Company Number: US-CELGENEUS-163-21880-11042424

PATIENT
  Age: 68 Year
  Sex: Male

DRUGS (6)
  1. DEXAMETHASONE [Concomitant]
     Route: 065
  2. DIGOXIN [Concomitant]
     Route: 065
  3. RENVELA [Concomitant]
     Route: 065
  4. REVLIMID [Suspect]
     Indication: MULTIPLE MYELOMA
     Dosage: 10 MILLIGRAM
     Route: 048
     Dates: start: 20081101, end: 20110101
  5. WARFARIN [Concomitant]
     Route: 065
  6. VICODIN [Concomitant]
     Route: 065

REACTIONS (4)
  - SEPTIC SHOCK [None]
  - PELVIC FRACTURE [None]
  - FALL [None]
  - DEATH [None]
